FAERS Safety Report 7686462-5 (Version None)
Quarter: 2011Q3

REPORT INFORMATION
  Report Type: 
  Country: None (occurrence: None)
  Receive Date: 20110811
  Receipt Date: 20110801
  Transmission Date: 20111222
  Serious: Yes (Other)
  Sender: FDA-Public Use
  Company Number: EU-2011-10138

PATIENT
  Age: 67 Year
  Sex: Male

DRUGS (1)
  1. PLETAL [Suspect]
     Dosage: 100 MG MILLIGRAM(S), ORAL
     Route: 048

REACTIONS (1)
  - PROSTATOMEGALY [None]
